FAERS Safety Report 25190398 (Version 1)
Quarter: 2025Q2

REPORT INFORMATION
  Report Type: Spontaneous
  Country: US (occurrence: US)
  Receive Date: 20250411
  Receipt Date: 20250411
  Transmission Date: 20250716
  Serious: No
  Sender: MERCK SHARP AND DOHME
  Company Number: US-009507513-2272098

PATIENT
  Age: 83 Year
  Sex: Male

DRUGS (1)
  1. IMIPENEM [Suspect]
     Active Substance: IMIPENEM
     Indication: Mycobacterium abscessus infection

REACTIONS (3)
  - Drug resistance [Unknown]
  - No adverse event [Unknown]
  - Product use in unapproved indication [Unknown]
